FAERS Safety Report 8954567 (Version 4)
Quarter: 2013Q3

REPORT INFORMATION
  Report Type: Spontaneous
  Country: JP (occurrence: JP)
  Receive Date: 20121210
  Receipt Date: 20130910
  Transmission Date: 20140515
  Serious: Yes (Hospitalization, Other)
  Sender: FDA-Public Use
  Company Number: PHHY2012JP112645

PATIENT
  Age: 76 Year
  Sex: Female
  Weight: 55 kg

DRUGS (6)
  1. ZOMETA [Suspect]
     Indication: METASTASES TO BONE
     Dosage: 4 MG, PER ADMINISTRATION
     Route: 041
     Dates: start: 200807, end: 201104
  2. DIDRONEL [Suspect]
     Dosage: 200 MG, UNK
     Dates: start: 20130113
  3. DIDRONEL [Suspect]
     Dosage: UNK UKN, UNK
     Dates: start: 20120214
  4. DIDRONEL [Suspect]
     Dosage: UNK UKN, UNK
     Dates: start: 20121013
  5. NOLVADEX [Concomitant]
     Dosage: 20 MG, UNK
     Route: 048
  6. CALCIUM LACTATE [Concomitant]
     Dosage: 1500 MG, UNK
     Route: 048

REACTIONS (17)
  - Osteonecrosis of jaw [Not Recovered/Not Resolved]
  - Exposed bone in jaw [Unknown]
  - Purulent discharge [Recovered/Resolved]
  - Primary sequestrum [Unknown]
  - Pain [Unknown]
  - Swelling [Unknown]
  - Trismus [Unknown]
  - Actinomycosis [Unknown]
  - Abscess oral [Unknown]
  - Gingivitis [Unknown]
  - Osteomyelitis [Unknown]
  - Fistula [Unknown]
  - Erythema [Unknown]
  - Lymphadenopathy [Unknown]
  - Tenderness [Unknown]
  - Pathological fracture [Unknown]
  - Soft tissue infection [Unknown]
